FAERS Safety Report 7865169-5 (Version None)
Quarter: 2011Q4

REPORT INFORMATION
  Report Type: 
  Country: None (occurrence: None)
  Receive Date: 20111028
  Receipt Date: 20101025
  Transmission Date: 20120403
  Serious: No
  Sender: FDA-Public Use
  Company Number: US-GLAXOSMITHKLINE-A0888670A

PATIENT
  Age: 67 Year
  Sex: Female

DRUGS (12)
  1. GLIPIZIDE [Concomitant]
  2. LANTUS [Concomitant]
  3. ULTRAM [Concomitant]
  4. ADVAIR DISKUS 100/50 [Suspect]
     Indication: ASTHMA
     Dosage: 1PUFF TWICE PER DAY
     Route: 055
     Dates: start: 20060101
  5. ASPIRIN [Concomitant]
  6. METFORMIN HCL [Concomitant]
  7. TOPROL-XL [Concomitant]
  8. LOVASTATIN [Concomitant]
  9. IMDUR [Concomitant]
  10. PRINZIDE [Concomitant]
  11. PAXIL [Concomitant]
  12. UNSPECIFIED MEDICATION [Concomitant]

REACTIONS (2)
  - DYSPNOEA [None]
  - PRODUCT QUALITY ISSUE [None]
